FAERS Safety Report 7609176-6 (Version None)
Quarter: 2011Q3

REPORT INFORMATION
  Report Type: 
  Country: None (occurrence: None)
  Receive Date: 20110713
  Receipt Date: 20110713
  Transmission Date: 20111222
  Serious: Yes (Hospitalization)
  Sender: FDA-Public Use
  Company Number: None

PATIENT
  Age: 76 Year
  Sex: Male
  Weight: 64.41 kg

DRUGS (2)
  1. REVLIMID [Suspect]
     Indication: ACUTE MYELOID LEUKAEMIA
     Dosage: 50 MG PO QD DAYS 1-28 OF 28D CYCLE
     Route: 048
     Dates: start: 20110620
  2. AZACITIDINE [Suspect]
     Indication: ACUTE MYELOID LEUKAEMIA
     Dosage: 75 MG/M2/DAY D1-D5
     Dates: start: 20110620, end: 20110624

REACTIONS (7)
  - PERFORMANCE STATUS DECREASED [None]
  - DRUG HYPERSENSITIVITY [None]
  - RASH [None]
  - FATIGUE [None]
  - WEIGHT INCREASED [None]
  - DYSPNOEA [None]
  - OEDEMA PERIPHERAL [None]
